FAERS Safety Report 4658988-X (Version None)
Quarter: 2005Q2

REPORT INFORMATION
  Report Type: 
  Country: None (occurrence: None)
  Receive Date: 20050509
  Receipt Date: 20050425
  Transmission Date: 20051028
  Serious: Yes (Hospitalization, Congenital Anomaly)
  Sender: FDA-Public Use
  Company Number: 05P-056-0298430-00

PATIENT
  Sex: Male

DRUGS (1)
  1. DEPAKENE [Suspect]

REACTIONS (5)
  - DRUG EXPOSURE DURING PREGNANCY [None]
  - ENOPHTHALMOS [None]
  - FACIAL DYSMORPHISM [None]
  - SPEECH DISORDER DEVELOPMENTAL [None]
  - VERTICAL INFECTION TRANSMISSION [None]
